FAERS Safety Report 5429363-5 (Version None)
Quarter: 2007Q3

REPORT INFORMATION
  Report Type: 
  Country: None (occurrence: None)
  Receive Date: 20070827
  Receipt Date: 20070813
  Transmission Date: 20080115
  Serious: Yes (Hospitalization)
  Sender: FDA-Public Use
  Company Number: 2005P1000302

PATIENT
  Age: 63 Year
  Sex: Male
  Weight: 85 kg

DRUGS (8)
  1. RETEPLASE (RETEPLASE) [Suspect]
     Indication: ACUTE MYOCARDIAL INFARCTION
     Dosage: 5 IU; BID; IV
     Route: 042
     Dates: start: 20050718, end: 20050718
  2. ABCIXIMAB (ABCIXIMAB) [Suspect]
     Indication: ACUTE MYOCARDIAL INFARCTION
     Dosage: 10.6 MG; X1; IV
     Route: 042
     Dates: start: 20050718, end: 20050718
  3. ASPIRIN [Concomitant]
  4. CLOPIDOGREL [Concomitant]
  5. BISOPROLOL [Concomitant]
  6. ATORVASTATIN [Concomitant]
  7. PERINDOPRIL ERBUMINE [Concomitant]
  8. GABAPENTIN [Concomitant]

REACTIONS (2)
  - NO THERAPEUTIC RESPONSE [None]
  - VASCULAR PSEUDOANEURYSM [None]
